FAERS Safety Report 7551193-9 (Version None)
Quarter: 2011Q2

REPORT INFORMATION
  Report Type: 
  Country: None (occurrence: None)
  Receive Date: 20110616
  Receipt Date: 20110602
  Transmission Date: 20111010
  Serious: Yes (Other)
  Sender: FDA-Public Use
  Company Number: PHHY2011RU48467

PATIENT
  Age: 63 Year
  Sex: Female

DRUGS (2)
  1. ACTOVEGIN [Concomitant]
     Dosage: UNK
  2. ZOLEDRONIC ACID [Suspect]
     Indication: OSTEOPOROSIS
     Dosage: 5 MG, UNK
     Route: 042
     Dates: start: 20110506

REACTIONS (6)
  - VISUAL IMPAIRMENT [None]
  - PROCTALGIA [None]
  - EYE OEDEMA [None]
  - PYREXIA [None]
  - HEADACHE [None]
  - EYE DISORDER [None]
